FAERS Safety Report 5475209-9 (Version None)
Quarter: 2007Q4

REPORT INFORMATION
  Report Type: 
  Country: None (occurrence: None)
  Receive Date: 20071002
  Receipt Date: 20070920
  Transmission Date: 20080405
  Serious: Yes (Hospitalization)
  Sender: FDA-Public Use
  Company Number: JP-PFIZER INC-2007078963

PATIENT
  Age: 65 Year
  Sex: Female

DRUGS (4)
  1. FARMORUBICIN RD [Suspect]
     Indication: BREAST CANCER
     Route: 042
  2. ENDOXAN [Suspect]
     Indication: BREAST CANCER
     Route: 042
  3. GRAN [Suspect]
     Route: 058
  4. MAXIPIME [Suspect]

REACTIONS (1)
  - INTERSTITIAL LUNG DISEASE [None]
